FAERS Safety Report 8964066 (Version 1)
Quarter: 2012Q4

REPORT INFORMATION
  Report Type: 
  Country: US (occurrence: US)
  Receive Date: 20121213
  Receipt Date: 20121213
  Transmission Date: 20130627
  Serious: Yes (Other)
  Sender: FDA-Public Use
  Company Number: US-GLAXOSMITHKLINE-A1004063A

PATIENT
  Age: 46 Year
  Sex: Female

DRUGS (6)
  1. ADVAIR [Suspect]
     Indication: ASTHMA
     Dosage: 1PUFF Twice per day
     Route: 055
     Dates: start: 20020101
  2. SINGULAIR [Concomitant]
  3. ESTROGEN [Concomitant]
  4. LOSARTAN WITH HYDROCHLOROTHIAZIDE [Concomitant]
  5. NYSTATIN [Concomitant]
     Indication: CANDIDIASIS
     Route: 048
  6. PAIN MEDICATION [Concomitant]
     Indication: SPINAL FUSION SURGERY

REACTIONS (2)
  - Candidiasis [Not Recovered/Not Resolved]
  - Cheilitis [Not Recovered/Not Resolved]
